FAERS Safety Report 7351066-0 (Version None)
Quarter: 2011Q1

REPORT INFORMATION
  Report Type: 
  Country: None (occurrence: None)
  Receive Date: 20110314
  Receipt Date: 20110307
  Transmission Date: 20110831
  Serious: Yes (Death)
  Sender: FDA-Public Use
  Company Number: JP-BAYER-201015520BYL

PATIENT
  Sex: Female
  Weight: 85 kg

DRUGS (6)
  1. LASIX [Concomitant]
     Indication: ASCITES
     Dosage: UNK
     Dates: start: 20101005
  2. AMARYL [Concomitant]
     Indication: DIABETES MELLITUS
     Dosage: UNK
     Route: 048
     Dates: start: 20100918
  3. BASEN [Concomitant]
     Indication: DIABETES MELLITUS
     Dosage: UNK
  4. ALMATOL [Concomitant]
     Indication: ASCITES
     Dosage: UNK
     Dates: start: 20101005
  5. NEXAVAR [Suspect]
     Indication: HEPATIC NEOPLASM MALIGNANT
     Dosage: 400 MG, QD
     Route: 048
     Dates: start: 20100929, end: 20101020
  6. BIFIDOBACTERIUM BIFIDUM [Concomitant]
     Indication: DIARRHOEA
     Dosage: UNK
     Dates: start: 20100922

REACTIONS (1)
  - DIABETIC KETOACIDOSIS [None]
